FAERS Safety Report 12257215 (Version 2)
Quarter: 2016Q2

REPORT INFORMATION
  Report Type: Report from Study
  Country: US (occurrence: US)
  Receive Date: 20160412
  Receipt Date: 20160425
  Transmission Date: 20160815
  Serious: Yes (Hospitalization)
  Sender: FDA-Public Use
  Company Number: US-ACTELION-A-US2016-134122

PATIENT
  Age: 65 Year
  Sex: Female

DRUGS (5)
  1. WARFARIN [Concomitant]
     Active Substance: WARFARIN
     Dosage: 12 MG, UNK
     Dates: end: 201603
  2. LOVENOX [Concomitant]
     Active Substance: ENOXAPARIN SODIUM
     Dosage: 120 MG, QD
     Dates: start: 201603
  3. HYDROXYUREA. [Concomitant]
     Active Substance: HYDROXYUREA
     Dosage: 1200 MG, UNK
  4. EPOGEN [Concomitant]
     Active Substance: ERYTHROPOIETIN
     Dosage: 40000 UNK, UNK
  5. TRACLEER [Suspect]
     Active Substance: BOSENTAN
     Indication: PULMONARY HYPERTENSION
     Dosage: 125 MG, BID
     Route: 048
     Dates: start: 2009

REACTIONS (5)
  - Pulmonary embolism [Recovering/Resolving]
  - Infection [Recovering/Resolving]
  - Pulmonary arterial hypertension [Recovering/Resolving]
  - Condition aggravated [Recovering/Resolving]
  - Sepsis [Recovering/Resolving]
